FAERS Safety Report 19188529 (Version 1)
Quarter: 2021Q2

REPORT INFORMATION
  Report Type: Spontaneous
  Country: US (occurrence: US)
  Receive Date: 20210428
  Receipt Date: 20210428
  Transmission Date: 20210717
  Serious: No
  Sender: FDA-Public Use
  Company Number: US-SA-2021SA121589

PATIENT
  Sex: Female

DRUGS (1)
  1. XYZAL [Suspect]
     Active Substance: LEVOCETIRIZINE DIHYDROCHLORIDE
     Indication: RASH PRURITIC
     Dosage: UNK

REACTIONS (2)
  - Rash pruritic [Not Recovered/Not Resolved]
  - Drug ineffective [Not Recovered/Not Resolved]
